FAERS Safety Report 5245440-6 (Version None)
Quarter: 2007Q1

REPORT INFORMATION
  Report Type: 
  Country: None (occurrence: None)
  Receive Date: 20070223
  Receipt Date: 20070220
  Transmission Date: 20070707
  Serious: Yes (Death, Hospitalization, Other)
  Sender: FDA-Public Use
  Company Number: PHEH2007US02049

PATIENT
  Age: 53 Year
  Sex: Male

DRUGS (12)
  1. SANDOSTATIN LAR [Suspect]
     Indication: PARAGANGLION NEOPLASM
     Dosage: 60 MG, ONCE/SINGLE
     Dates: start: 20060801
  2. SANDOSTATIN LAR [Suspect]
     Dosage: 30 MG, QMO
     Dates: start: 20060901, end: 20061001
  3. ANTIHYPERTENSIVE DRUGS [Concomitant]
  4. ANTIDIABETICS [Concomitant]
  5. ACTOS /USA/ [Concomitant]
  6. ADVIL [Concomitant]
  7. PRAVACHOL [Concomitant]
  8. METOPROLOL SUCCINATE [Concomitant]
  9. POTASSIUM IODIDE [Concomitant]
  10. DOXAZOSIN MESYLATE [Concomitant]
  11. VICODIN [Concomitant]
  12. CIPROFLOXACIN [Concomitant]

REACTIONS (11)
  - ABDOMINAL PAIN [None]
  - BLOOD PRESSURE INCREASED [None]
  - DIARRHOEA [None]
  - FATIGUE [None]
  - FEELING HOT AND COLD [None]
  - FLATULENCE [None]
  - HYPERGLYCAEMIA [None]
  - INTESTINAL OBSTRUCTION [None]
  - INTESTINAL PERFORATION [None]
  - SEPSIS [None]
  - WEIGHT DECREASED [None]
